FAERS Safety Report 5797504-6 (Version None)
Quarter: 2008Q2

REPORT INFORMATION
  Report Type: 
  Country: None (occurrence: None)
  Receive Date: 20080630
  Receipt Date: 20080613
  Transmission Date: 20081010
  Serious: Yes (Hospitalization)
  Sender: FDA-Public Use
  Company Number: 2008AL006867

PATIENT
  Age: 55 Year
  Sex: Female
  Weight: 45.3597 kg

DRUGS (7)
  1. DIGOXIN [Suspect]
     Dosage: 0.25 MG, DAILY, PO
     Route: 048
  2. LISINOPRIL [Concomitant]
  3. LASIX [Concomitant]
  4. ALDACTONE [Concomitant]
  5. COUMADIN [Concomitant]
  6. PACERONE [Concomitant]
  7. POTASSIUM CHLORIDE [Concomitant]

REACTIONS (3)
  - ASCITES [None]
  - GASTRIC DISORDER [None]
  - LIVER DISORDER [None]
